FAERS Safety Report 18744398 (Version 4)
Quarter: 2023Q1

REPORT INFORMATION
  Report Type: Spontaneous
  Country: FR (occurrence: FR)
  Receive Date: 20210115
  Receipt Date: 20230128
  Transmission Date: 20230418
  Serious: Yes (Other)
  Sender: FDA-Public Use
  Company Number: FR-AFSSAPS-AN20210007

PATIENT
  Age: 57 Year
  Sex: Female
  Weight: 50 kg

DRUGS (12)
  1. CAPECITABINE [Suspect]
     Active Substance: CAPECITABINE
     Indication: Breast cancer metastatic
     Dosage: 10000 MILLIGRAM PER 21 DAYS
     Route: 065
  2. CAPECITABINE [Suspect]
     Active Substance: CAPECITABINE
     Dosage: 10000 MILLIGRAM, EVERY WEEK
     Route: 048
     Dates: start: 2019, end: 20200908
  3. CETIRIZINE [Suspect]
     Active Substance: CETIRIZINE HYDROCHLORIDE
     Indication: Prophylaxis of nausea and vomiting
     Dosage: 10 MILLIGRAM, CYCLICAL
     Route: 048
  4. CIMETIDINE [Suspect]
     Active Substance: CIMETIDINE
     Indication: Prophylaxis of nausea and vomiting
     Dosage: 1000 MILLIGRAM, CYCLICAL
     Route: 048
  5. OMEPRAZOLE [Suspect]
     Active Substance: OMEPRAZOLE
     Indication: Gastrooesophageal reflux disease
     Dosage: 20 MILLIGRAM, ONCE A DAY
     Route: 048
  6. PACLITAXEL [Suspect]
     Active Substance: PACLITAXEL
     Indication: Breast cancer metastatic
     Dosage: 114 MILLIGRAM, CYCLICAL
     Route: 041
     Dates: start: 20200309, end: 20200825
  7. PREDNISOLONE [Suspect]
     Active Substance: PREDNISOLONE
     Indication: Prophylaxis of nausea and vomiting
     Dosage: 40 MILLIGRAM, CYCLICAL
     Route: 048
  8. MORPHINE SULFATE [Suspect]
     Active Substance: MORPHINE SULFATE
     Indication: Pain
     Dosage: 1 DOSAGE FORM, ONCE A DAY
     Route: 048
  9. PERTUZUMAB [Suspect]
     Active Substance: PERTUZUMAB
     Indication: Breast cancer metastatic
     Dosage: 420 MILLIGRAM, CYCLICAL
     Route: 041
     Dates: start: 20200302
  10. SKENAN [Suspect]
     Active Substance: MORPHINE SULFATE
     Indication: Pain
     Dosage: 1 DOSAGE FORM, ONCE A DAY (1-0-2)
     Route: 048
  11. TOUJEO [Suspect]
     Active Substance: INSULIN GLARGINE
     Indication: Insulin-requiring type 2 diabetes mellitus
     Dosage: 12 INTERNATIONAL UNIT, ONCE A DAY
     Route: 058
  12. TRASTUZUMAB [Suspect]
     Active Substance: TRASTUZUMAB
     Indication: Breast cancer metastatic
     Dosage: 294 MILLIGRAM, CYCLICAL
     Route: 041
     Dates: start: 20200302

REACTIONS (2)
  - Visual acuity reduced [Recovered/Resolved]
  - Keratitis [Recovered/Resolved]

NARRATIVE: CASE EVENT DATE: 20200601
